FAERS Safety Report 23694986 (Version 1)
Quarter: 2024Q2

REPORT INFORMATION
  Report Type: Spontaneous
  Country: IT (occurrence: IT)
  Receive Date: 20240402
  Receipt Date: 20240402
  Transmission Date: 20240716
  Serious: Yes (Death, Other)
  Sender: FDA-Public Use
  Company Number: IT-EMA-DD-20240328-7482715-062428

PATIENT
  Age: 55 Year
  Sex: Male

DRUGS (9)
  1. HUMAN IMMUNOGLOBULIN G [Suspect]
     Active Substance: HUMAN IMMUNOGLOBULIN G
     Dosage: 400 MG/KG
     Route: 065
  2. HUMAN IMMUNOGLOBULIN G [Suspect]
     Active Substance: HUMAN IMMUNOGLOBULIN G
     Indication: Immunosuppression
     Dosage: 2 GRAM PER GRAM
     Route: 042
  3. MYCOPHENOLATE MOFETIL [Suspect]
     Active Substance: MYCOPHENOLATE MOFETIL
     Dosage: OVER 3 WEEKS
     Route: 065
  4. MYCOPHENOLATE MOFETIL [Suspect]
     Active Substance: MYCOPHENOLATE MOFETIL
     Indication: Dermatomyositis
     Route: 065
  5. METHYLPREDNISOLONE [Suspect]
     Active Substance: METHYLPREDNISOLONE
     Indication: Dermatomyositis
     Dosage: 0.7 MG/KG, QD
     Route: 065
  6. PREDNISONE [Suspect]
     Active Substance: PREDNISONE
     Indication: Dermatomyositis
     Dosage: 10.000MG
     Route: 065
  7. RITUXIMAB [Suspect]
     Active Substance: RITUXIMAB
     Indication: Dermatomyositis
     Route: 065
  8. TACROLIMUS [Suspect]
     Active Substance: TACROLIMUS
     Indication: Dermatomyositis
     Dosage: UNK
     Route: 065
  9. BEGELOMAB [Concomitant]
     Active Substance: BEGELOMAB
     Indication: Dermatomyositis
     Route: 042

REACTIONS (8)
  - Pneumonia aspiration [Fatal]
  - Respiratory failure [Fatal]
  - Acute hepatitis C [Unknown]
  - Enterococcal sepsis [Unknown]
  - Fungal peritonitis [Unknown]
  - Condition aggravated [Unknown]
  - Dermatomyositis [Unknown]
  - Off label use [Unknown]
